FAERS Safety Report 7384777-1 (Version None)
Quarter: 2011Q1

REPORT INFORMATION
  Report Type: 
  Country: None (occurrence: None)
  Receive Date: 20110330
  Receipt Date: 20110321
  Transmission Date: 20110831
  Serious: Yes (Other)
  Sender: FDA-Public Use
  Company Number: US-ASTRAZENECA-2011SE11636

PATIENT
  Sex: Male

DRUGS (24)
  1. SEROQUEL XR [Suspect]
     Indication: INSOMNIA
     Route: 048
     Dates: start: 20080101, end: 20100901
  2. METHADONE [Concomitant]
     Indication: ARTHRALGIA
  3. GEMFIBROZIL [Concomitant]
     Indication: HYPERCHOLESTEROLAEMIA
  4. ASA BAYER [Concomitant]
  5. TRUNATURE CRANBERRY [Concomitant]
  6. LISINOPRIL [Suspect]
     Indication: HYPERTENSION
     Route: 048
  7. CYMBALTA [Concomitant]
     Indication: ANTIDEPRESSANT THERAPY
  8. TERAZOSIN [Concomitant]
     Indication: HYPERTENSION
  9. UNITS LANTUS [Concomitant]
  10. SEROQUEL XR [Suspect]
     Route: 048
     Dates: start: 20100901
  11. KIRKLAND OMEGA3 FISH OIL [Concomitant]
  12. KIRKLAND ALLERGY MEDICATION [Concomitant]
  13. NOVOLOG MIX 70/30 INSULIN [Concomitant]
  14. NIASPAN [Concomitant]
     Indication: HYPERLIPIDAEMIA
  15. SIMVASTATIN [Concomitant]
     Indication: HYPERCHOLESTEROLAEMIA
  16. GEMFIBROZIL [Concomitant]
     Indication: HYPERLIPIDAEMIA
  17. FINASTERIDE [Concomitant]
     Indication: PROSTATOMEGALY
  18. KIRKLAND CALCIUM+ D3 [Concomitant]
  19. PRILOSEC [Suspect]
     Indication: HYPERCHLORHYDRIA
     Route: 048
  20. VITAMIN D [Concomitant]
  21. SEROQUEL XR [Suspect]
     Indication: DEPRESSION
     Route: 048
     Dates: start: 20080101, end: 20100901
  22. SEROQUEL XR [Suspect]
     Route: 048
     Dates: start: 20100901
  23. DOXAZOSIN [Concomitant]
     Indication: HYPERTENSION
  24. VITAMIN E [Concomitant]

REACTIONS (7)
  - OFF LABEL USE [None]
  - WRONG TECHNIQUE IN DRUG USAGE PROCESS [None]
  - DRUG INEFFECTIVE FOR UNAPPROVED INDICATION [None]
  - CORONARY ARTERIAL STENT INSERTION [None]
  - INTERVERTEBRAL DISC PROTRUSION [None]
  - INSOMNIA [None]
  - NERVE ROOT COMPRESSION [None]
